FAERS Safety Report 4591647-0 (Version None)
Quarter: 2005Q1

REPORT INFORMATION
  Report Type: 
  Country: None (occurrence: None)
  Receive Date: 20050218
  Receipt Date: 20041228
  Transmission Date: 20050727
  Serious: Yes (Other)
  Sender: FDA-Public Use
  Company Number: 2005020279

PATIENT
  Sex: Female
  Weight: 122.4712 kg

DRUGS (13)
  1. CELEBREX [Suspect]
     Indication: OSTEOARTHRITIS
     Dosage: ORAL
     Route: 048
  2. BEXTRA [Suspect]
     Indication: OSTEOARTHRITIS
     Dosage: 20 MG (20 MG, 1 IN 1 D), ORAL
     Route: 048
  3. ROFECOXIB [Suspect]
     Indication: OSTEOARTHRITIS
     Dosage: ORAL
     Route: 048
  4. FUROSEMIDE [Concomitant]
  5. ASPIRIN [Concomitant]
  6. ESCITALOPRAM (ESCITALOPRAM) [Concomitant]
  7. ATORVASTATIN (ATORVASTATIN) [Concomitant]
  8. TRAMADOL HCL [Concomitant]
  9. POTASSIUM CHLORIDE [Concomitant]
  10. ALPRAZOLAM [Concomitant]
  11. CONJUGATED ESTROGENS [Concomitant]
  12. VICODIN [Concomitant]
  13. IRBESARTAN [Concomitant]

REACTIONS (11)
  - CHEST PAIN [None]
  - DIFFICULTY IN WALKING [None]
  - DRUG INEFFECTIVE [None]
  - DYSPNOEA [None]
  - FLUID RETENTION [None]
  - GASTRIC DISORDER [None]
  - ORAL MUCOSAL BLISTERING [None]
  - POST PROCEDURAL PAIN [None]
  - PYREXIA [None]
  - STOMATITIS [None]
  - WEIGHT INCREASED [None]
